FAERS Safety Report 19293873 (Version 1)
Quarter: 2021Q2

REPORT INFORMATION
  Report Type: Spontaneous
  Country: US (occurrence: US)
  Receive Date: 20210524
  Receipt Date: 20210524
  Transmission Date: 20210717
  Serious: Yes (Death)
  Sender: FDA-Public Use
  Company Number: None

PATIENT
  Age: 57 Year
  Sex: Female

DRUGS (18)
  1. LAMOTRIGINE. [Concomitant]
     Active Substance: LAMOTRIGINE
  2. GABAPENTIN. [Concomitant]
     Active Substance: GABAPENTIN
  3. LEVOFLOXACIN. [Concomitant]
     Active Substance: LEVOFLOXACIN
  4. OLANZAPINE. [Concomitant]
     Active Substance: OLANZAPINE
  5. IPRATROPIUM/SOL ALBUTER [Concomitant]
  6. PROMETH/COD [Concomitant]
  7. METRONIDAZOL [Concomitant]
     Active Substance: METRONIDAZOLE
  8. CODEINE SULF [Concomitant]
  9. ADDERALL XR [Concomitant]
     Active Substance: AMPHETAMINE ASPARTATE\AMPHETAMINE SULFATE\DEXTROAMPHETAMINE SACCHARATE\DEXTROAMPHETAMINE SULFATE
  10. HUMIRA [Suspect]
     Active Substance: ADALIMUMAB
     Indication: CROHN^S DISEASE
     Dosage: ?          OTHER FREQUENCY:ON DAY 1;?
     Route: 058
     Dates: start: 20210324
  11. CYCLOBENZAPR [Concomitant]
     Active Substance: CYCLOBENZAPRINE
  12. PREGABALIN. [Concomitant]
     Active Substance: PREGABALIN
  13. APAP/CODEINE [Concomitant]
     Active Substance: ACETAMINOPHEN\CODEINE PHOSPHATE
  14. PROMETHAZINE [Concomitant]
     Active Substance: PROMETHAZINE HYDROCHLORIDE
  15. BENZONATATE. [Concomitant]
     Active Substance: BENZONATATE
  16. DEXAMETHASON [Concomitant]
     Active Substance: DEXAMETHASONE
  17. LORAZEPAM. [Concomitant]
     Active Substance: LORAZEPAM
  18. LIDOCAINE. [Concomitant]
     Active Substance: LIDOCAINE

REACTIONS (1)
  - Death [None]
